FAERS Safety Report 7406264-4 (Version None)
Quarter: 2011Q2

REPORT INFORMATION
  Report Type: 
  Country: None (occurrence: None)
  Receive Date: 20110401
  Receipt Date: 20110316
  Transmission Date: 20111010
  Serious: Yes (Other)
  Sender: FDA-Public Use
  Company Number: 2011SP012100

PATIENT
  Age: 45 Year
  Sex: Female

DRUGS (2)
  1. FUNGIZONE [Concomitant]
  2. ASMANEX TWISTHALER [Suspect]
     Indication: ASTHMA
     Dosage: 200 MCG;BID;INH
     Route: 055
     Dates: start: 20110201

REACTIONS (2)
  - ABDOMINAL PAIN LOWER [None]
  - OVARIAN ENLARGEMENT [None]
